FAERS Safety Report 17136343 (Version 2)
Quarter: 2020Q1

REPORT INFORMATION
  Report Type: Report from Study
  Country: IT (occurrence: IT)
  Receive Date: 20191210
  Receipt Date: 20200211
  Transmission Date: 20200409
  Serious: Yes (Other)
  Sender: FDA-Public Use
  Company Number: PHHY2017IT099189

PATIENT
  Age: 21 Year
  Sex: Female

DRUGS (1)
  1. GILENYA [Suspect]
     Active Substance: FINGOLIMOD HYDROCHLORIDE
     Indication: MULTIPLE SCLEROSIS
     Dosage: UNK, QD
     Route: 048

REACTIONS (13)
  - Headache [Recovered/Resolved]
  - Back pain [Recovered/Resolved]
  - Blood bilirubin [Unknown]
  - Lymphocyte count decreased [Not Recovered/Not Resolved]
  - Thyroid mass [Not Recovered/Not Resolved]
  - Neck pain [Recovered/Resolved]
  - White blood cell count decreased [Unknown]
  - Road traffic accident [Recovered/Resolved]
  - Rhinitis [Recovered/Resolved]
  - Vulvovaginal candidiasis [Recovered/Resolved]
  - Menstruation irregular [Recovered/Resolved]
  - Haemorrhoids [Not Recovered/Not Resolved]
  - Ligament sprain [Unknown]

NARRATIVE: CASE EVENT DATE: 20170223
